FAERS Safety Report 6197702-6 (Version None)
Quarter: 2009Q2

REPORT INFORMATION
  Report Type: 
  Country: None (occurrence: None)
  Receive Date: 20090521
  Receipt Date: 20090512
  Transmission Date: 20091009
  Serious: Yes (Hospitalization, Other)
  Sender: FDA-Public Use
  Company Number: US-ELI_LILLY_AND_COMPANY-US200905002264

PATIENT
  Age: 52 Year
  Sex: Female

DRUGS (1)
  1. XIGRIS [Suspect]
     Dosage: OTHER; 2 DOSES INFUSED
     Dates: start: 20090507, end: 20090508

REACTIONS (2)
  - RENAL FAILURE [None]
  - SEPTIC SHOCK [None]
